FAERS Safety Report 20562463 (Version 1)
Quarter: 2022Q1

REPORT INFORMATION
  Report Type: Spontaneous
  Country: US (occurrence: US)
  Receive Date: 20220307
  Receipt Date: 20220307
  Transmission Date: 20220423
  Serious: Yes (Death, Hospitalization, Other)
  Sender: FDA-Public Use
  Company Number: US-BAYER-2022A028147

PATIENT
  Age: 80 Year
  Sex: Male
  Weight: 94 kg

DRUGS (2)
  1. BAYER LOW DOSE [Interacting]
     Active Substance: ASPIRIN
     Dosage: UNK
     Dates: start: 20060101
  2. CLOPIDOGREL [Interacting]
     Active Substance: CLOPIDOGREL BISULFATE
     Dosage: UNK
     Dates: start: 20210722

REACTIONS (4)
  - Subdural haematoma [Fatal]
  - Hyponatraemia [Recovered/Resolved]
  - Acute myocardial infarction [Recovered/Resolved]
  - Labelled drug-drug interaction medication error [Fatal]

NARRATIVE: CASE EVENT DATE: 20210721
